FAERS Safety Report 22245166 (Version 1)
Quarter: 2023Q2

REPORT INFORMATION
  Report Type: Spontaneous
  Country: US (occurrence: None)
  Receive Date: 20230423
  Receipt Date: 20230423
  Transmission Date: 20230722
  Serious: Yes (Disabling, Other)
  Sender: FDA-Public Use
  Company Number: None

PATIENT
  Sex: Female
  Weight: 54 kg

DRUGS (8)
  1. LORAZEPAM [Suspect]
     Active Substance: LORAZEPAM
     Indication: Anxiety
     Dosage: FREQUENCY : TWICE A DAY;?
     Route: 048
     Dates: start: 20201217, end: 20210910
  2. DIAZEPAM [Suspect]
     Active Substance: DIAZEPAM
     Dosage: FREQUENCY : AT BEDTIME;?
     Route: 048
     Dates: start: 20210518
  3. UBRELVY [Concomitant]
     Active Substance: UBROGEPANT
  4. AJOVY [Concomitant]
     Active Substance: FREMANEZUMAB-VFRM
  5. HYDROXYZINE [Concomitant]
     Active Substance: HYDROXYZINE HYDROCHLORIDE
  6. IRON [Concomitant]
     Active Substance: IRON
  7. VITAMIN B COMPLEX [Concomitant]
     Active Substance: CYANOCOBALAMIN\DEXPANTHENOL\NIACINAMIDE\PYRIDOXINE HYDROCHLORIDE\RIBOFLAVIN 5^-PHOSPHATE SODIUM\THIA
  8. VITAMIN C [Concomitant]
     Active Substance: ASCORBIC ACID

REACTIONS (41)
  - Anxiety [None]
  - Suicidal ideation [None]
  - Intrusive thoughts [None]
  - Myalgia [None]
  - Arthralgia [None]
  - Exercise tolerance decreased [None]
  - Gastric hypomotility [None]
  - Allergic respiratory disease [None]
  - Food intolerance [None]
  - Insomnia [None]
  - Akathisia [None]
  - Drug withdrawal syndrome [None]
  - Anhedonia [None]
  - Aphasia [None]
  - Migraine [None]
  - Menstruation irregular [None]
  - Loss of libido [None]
  - Impaired driving ability [None]
  - Dizziness [None]
  - Tinnitus [None]
  - Depression [None]
  - Hypotension [None]
  - Depersonalisation/derealisation disorder [None]
  - Derealisation [None]
  - Tremor [None]
  - Dyspnoea [None]
  - Irritability [None]
  - Crying [None]
  - Intentional self-injury [None]
  - Photosensitivity reaction [None]
  - Fatigue [None]
  - Parosmia [None]
  - Hyperacusis [None]
  - Weight decreased [None]
  - Impaired work ability [None]
  - Loss of personal independence in daily activities [None]
  - Decreased appetite [None]
  - Muscular weakness [None]
  - Hallucination [None]
  - Drug tolerance increased [None]
  - Malnutrition [None]
